FAERS Safety Report 8895677 (Version 1)
Quarter: 2012Q4

REPORT INFORMATION
  Report Type: 
  Country: GB (occurrence: GB)
  Receive Date: 20121108
  Receipt Date: 20121108
  Transmission Date: 20130627
  Serious: Yes (Death, Other)
  Sender: FDA-Public Use
  Company Number: GB-TEVA-352363ISR

PATIENT
  Age: 79 Year
  Sex: Female

DRUGS (27)
  1. BUMETANIDE [Suspect]
  2. CLARITHROMYCIN [Suspect]
     Indication: PNEUMONIA
     Dosage: 500 mg, bid
     Route: 048
     Dates: start: 20120512, end: 20120521
  3. SPIRONOLACTONE [Suspect]
  4. ZOCOR [Suspect]
     Route: 048
  5. ADCAL-D3 [Concomitant]
  6. ADENOSINE [Concomitant]
  7. AMIODARONE [Concomitant]
  8. BISOPROLOL [Concomitant]
  9. CANDESARTAN [Concomitant]
  10. CLOTRIMAZOLE [Concomitant]
  11. AMOXICILLIN\CLAVULANATE POTASSIUM [Concomitant]
  12. ACETAMINOPHEN / CODEINE [Concomitant]
  13. DALTEPARIN SODIUM [Concomitant]
  14. DICLOFENAC DIETHYLAMINE [Concomitant]
  15. DIORALYTE [Concomitant]
  16. FOLIC ACID [Concomitant]
  17. FORTISIP [Concomitant]
  18. FUROSEMIDE [Concomitant]
  19. GENTAMICIN [Concomitant]
  20. HEPARIN [Concomitant]
     Indication: PULMONARY EMBOLISM
  21. METHOTREXATE [Concomitant]
  22. METOCLOPRAMIDE [Concomitant]
  23. OMEPRAZOLE [Concomitant]
  24. ACETAMINOPHEN [Concomitant]
  25. TEICOPLANIN [Concomitant]
     Indication: PNEUMONIA
  26. TRAMADOL HYDROCHLORIDE [Concomitant]
  27. WARFARIN [Concomitant]
     Indication: PULMONARY EMBOLISM

REACTIONS (22)
  - Toxic epidermal necrolysis [Fatal]
  - Stevens-Johnson syndrome [Fatal]
  - Renal failure acute [Unknown]
  - Atrial fibrillation [Unknown]
  - Oedema peripheral [Unknown]
  - Blister [Unknown]
  - Blood creatinine increased [Unknown]
  - Scab [Unknown]
  - Eczema [Unknown]
  - Fluid overload [Unknown]
  - Haemoglobin decreased [Unknown]
  - Dry skin [Unknown]
  - Hypersensitivity [Unknown]
  - Pruritus [Unknown]
  - Rash pruritic [Unknown]
  - Rash maculo-papular [Unknown]
  - Pain [Unknown]
  - Petechiae [Unknown]
  - Exfoliative rash [Unknown]
  - Erythema [Unknown]
  - Swelling [Unknown]
  - Rash generalised [Unknown]
